FAERS Safety Report 25796009 (Version 1)
Quarter: 2025Q3

REPORT INFORMATION
  Report Type: Spontaneous
  Country: AR (occurrence: AR)
  Receive Date: 20250912
  Receipt Date: 20250912
  Transmission Date: 20251021
  Serious: Yes (Death)
  Sender: PFIZER
  Company Number: AR-PFIZER INC-202500180229

PATIENT
  Age: 14 Year
  Sex: Male

DRUGS (1)
  1. MYLOTARG [Suspect]
     Active Substance: GEMTUZUMAB OZOGAMICIN
     Indication: Acute myeloid leukaemia
     Dates: start: 20250729

REACTIONS (1)
  - Death [Fatal]
